FAERS Safety Report 12326575 (Version 1)
Quarter: 2016Q2

REPORT INFORMATION
  Report Type: Spontaneous
  Country: US (occurrence: US)
  Receive Date: 20160503
  Receipt Date: 20160503
  Transmission Date: 20160815
  Serious: No
  Sender: FDA-Public Use
  Company Number: US-JAZZ-2015-US-012359

PATIENT
  Sex: Female
  Weight: 104.31 kg

DRUGS (3)
  1. XYREM [Suspect]
     Active Substance: SODIUM OXYBATE
     Indication: APNOEA
  2. VITAMIN D [Concomitant]
     Active Substance: CHOLECALCIFEROL
     Indication: SUPPLEMENTATION THERAPY
     Dosage: UNK
  3. OXYCODONE [Concomitant]
     Active Substance: OXYCODONE
     Indication: FIBROMYALGIA
     Dosage: UNK

REACTIONS (1)
  - Product use issue [Unknown]
